FAERS Safety Report 10280311 (Version 2)
Quarter: 2014Q4

REPORT INFORMATION
  Report Type: Spontaneous
  Country: AT (occurrence: AT)
  Receive Date: 20140707
  Receipt Date: 20141215
  Transmission Date: 20150528
  Serious: Yes (Other)
  Sender: FDA-Public Use
  Company Number: AT-ELI_LILLY_AND_COMPANY-AT201406009544

PATIENT
  Age: 56 Year
  Sex: Female
  Weight: 59.4 kg

DRUGS (21)
  1. CYMBALTA [Suspect]
     Active Substance: DULOXETINE HYDROCHLORIDE
     Dosage: 60 MG, QD
     Route: 048
     Dates: start: 20140507
  2. TRITTICO [Suspect]
     Active Substance: TRAZODONE HYDROCHLORIDE
     Indication: PRODUCT USED FOR UNKNOWN INDICATION
     Dosage: 150 MG, QD
     Route: 048
     Dates: start: 200404, end: 20140416
  3. PANTOLOC                           /01263204/ [Suspect]
     Active Substance: PANTOPRAZOLE SODIUM
     Indication: PRODUCT USED FOR UNKNOWN INDICATION
     Dosage: 40 MG, QD
     Route: 048
     Dates: start: 201404
  4. MAGNESIUM VERLA                    /00648601/ [Suspect]
     Active Substance: MAGNESIUM
     Dosage: 1 DF, QD
     Route: 048
     Dates: start: 20140425, end: 20140426
  5. DOMINAL FORTE [Concomitant]
     Active Substance: PROTHIPENDYL HYDROCHLORIDE
     Indication: PRODUCT USED FOR UNKNOWN INDICATION
     Dosage: 80 MG, QD
     Route: 065
     Dates: start: 201404, end: 20140417
  6. TOLVON [Concomitant]
     Active Substance: MIANSERIN
     Dosage: 30 MG, QD
     Dates: start: 20140512
  7. CYMBALTA [Suspect]
     Active Substance: DULOXETINE HYDROCHLORIDE
     Dosage: 60 MG, QD
     Route: 048
     Dates: start: 20140418, end: 20140505
  8. TEMESTA [Concomitant]
     Active Substance: LORAZEPAM
     Indication: PROPHYLAXIS
     Dosage: 1.25 MG, SINGLE
     Route: 065
     Dates: start: 20140423
  9. CYMBALTA [Suspect]
     Active Substance: DULOXETINE HYDROCHLORIDE
     Indication: DEPRESSION
     Dosage: 30 MG, QD
     Route: 048
     Dates: start: 20140410, end: 20140417
  10. NEUROBION FORTE                    /06411001/ [Suspect]
     Active Substance: CYANOCOBALAMIN\PYRIDOXINE\RIBOFLAVIN\THIAMINE
     Dosage: 2 DF, QD
     Route: 048
     Dates: start: 20140428, end: 20140428
  11. NEUROBION FORTE                    /06411001/ [Suspect]
     Active Substance: CYANOCOBALAMIN\PYRIDOXINE\RIBOFLAVIN\THIAMINE
     Indication: PRODUCT USED FOR UNKNOWN INDICATION
     Dosage: 6 DF, QD
     Route: 048
     Dates: start: 201404, end: 20140427
  12. DOMINAL FORTE [Concomitant]
     Active Substance: PROTHIPENDYL HYDROCHLORIDE
     Dosage: 80 MG, QD
     Dates: start: 20140422, end: 20140429
  13. DOMINAL FORTE [Concomitant]
     Active Substance: PROTHIPENDYL HYDROCHLORIDE
     Dosage: 80 MG, QD
     Route: 065
     Dates: start: 20140512
  14. TRITTICO [Suspect]
     Active Substance: TRAZODONE HYDROCHLORIDE
     Dosage: 200 MG, QD
     Route: 048
     Dates: start: 20140417
  15. PRAXITEN [Concomitant]
     Active Substance: OXAZEPAM
     Dosage: 7.5 MG, QD
     Route: 065
     Dates: start: 20140506, end: 20140507
  16. DOMINAL FORTE [Concomitant]
     Active Substance: PROTHIPENDYL HYDROCHLORIDE
     Dosage: 120 MG, QD
     Route: 065
     Dates: start: 20140430, end: 20140511
  17. MAGNESIUM VERLA                    /00648601/ [Suspect]
     Active Substance: MAGNESIUM
     Indication: PRODUCT USED FOR UNKNOWN INDICATION
     Dosage: 2 DF, QD
     Route: 048
     Dates: start: 201404, end: 20140424
  18. PRAXITEN [Concomitant]
     Active Substance: OXAZEPAM
     Dosage: 30 MG, QD
     Route: 065
     Dates: start: 20140419, end: 20140419
  19. PRAXITEN [Concomitant]
     Active Substance: OXAZEPAM
     Indication: ALCOHOL WITHDRAWAL SYNDROME
     Dosage: 15 MG, QD
     Route: 065
     Dates: start: 201404, end: 20140418
  20. PRAXITEN [Concomitant]
     Active Substance: OXAZEPAM
     Dosage: 15 MG, QD
     Route: 065
     Dates: start: 20140420, end: 20140505
  21. DOMINAL FORTE [Concomitant]
     Active Substance: PROTHIPENDYL HYDROCHLORIDE
     Dosage: 40 MG, QD
     Route: 065
     Dates: start: 20140418, end: 20140421

REACTIONS (5)
  - Diarrhoea [Recovering/Resolving]
  - Alanine aminotransferase increased [Unknown]
  - Blood creatinine decreased [Unknown]
  - Blood cholesterol increased [Unknown]
  - Crohn^s disease [Unknown]

NARRATIVE: CASE EVENT DATE: 20140422
